FAERS Safety Report 17818575 (Version 4)
Quarter: 2020Q2

REPORT INFORMATION
  Report Type: Report from Study
  Country: US (occurrence: US)
  Receive Date: 20200522
  Receipt Date: 20200624
  Transmission Date: 20200714
  Serious: No
  Sender: FDA-Public Use
  Company Number: NVSC2020US141282

PATIENT
  Age: 59 Year
  Sex: Male

DRUGS (5)
  1. ENTRESTO [Suspect]
     Active Substance: SACUBITRIL\VALSARTAN
     Indication: CARDIAC FAILURE CHRONIC
     Dosage: 1 DF, BID
     Route: 048
     Dates: start: 20200510
  2. ENTRESTO [Suspect]
     Active Substance: SACUBITRIL\VALSARTAN
     Indication: CARDIAC FAILURE
  3. ENTRESTO [Suspect]
     Active Substance: SACUBITRIL\VALSARTAN
     Indication: CARDIAC FAILURE
  4. XARELTO [Concomitant]
     Active Substance: RIVAROXABAN
     Indication: PRODUCT USED FOR UNKNOWN INDICATION
     Dosage: UNK
     Route: 065
     Dates: start: 20200619
  5. ELIQUIS [Concomitant]
     Active Substance: APIXABAN
     Indication: PRODUCT USED FOR UNKNOWN INDICATION
     Dosage: UNK
     Route: 065
     Dates: start: 20020619

REACTIONS (12)
  - Procedural pain [Unknown]
  - Product dose omission [Unknown]
  - Urine output decreased [Unknown]
  - Seasonal allergy [Unknown]
  - Decreased appetite [Recovering/Resolving]
  - Amnesia [Unknown]
  - Sinusitis [Unknown]
  - Hypersensitivity [Unknown]
  - Fluid retention [Recovering/Resolving]
  - Weight increased [Unknown]
  - Dyspnoea [Unknown]
  - Cough [Unknown]

NARRATIVE: CASE EVENT DATE: 202005
